FAERS Safety Report 9844308 (Version 1)
Quarter: 2014Q1

REPORT INFORMATION
  Report Type: Spontaneous
  Country: IT (occurrence: None)
  Receive Date: 20140123
  Receipt Date: 20140123
  Transmission Date: 20141002
  Serious: Yes (Hospitalization)
  Sender: FDA-Public Use
  Company Number: AUR-APL-2014-00469

PATIENT
  Sex: Female

DRUGS (1)
  1. LEVOFLOXACIN [Suspect]
     Indication: PRODUCT USED FOR UNKNOWN INDICATION

REACTIONS (4)
  - Anxiety [None]
  - Drug abuse [None]
  - Nausea [None]
  - Tachycardia [None]
